FAERS Safety Report 9585740 (Version 1)
Quarter: 2013Q4

REPORT INFORMATION
  Report Type: Spontaneous
  Country: US (occurrence: None)
  Receive Date: 20131002
  Receipt Date: 20131002
  Transmission Date: 20140711
  Serious: Yes (Death, Life-Threatening, Hospitalization)
  Sender: FDA-Public Use
  Company Number: None

PATIENT
  Age: 86 Year
  Sex: Female
  Weight: 79 kg

DRUGS (14)
  1. AMIODARONE [Suspect]
     Indication: ATRIAL FIBRILLATION
     Route: 048
     Dates: start: 20120618, end: 20130805
  2. ASA [Concomitant]
  3. CARBIDOPA-LEVODOPA [Concomitant]
  4. ENOXAPARIN [Concomitant]
  5. GABAPENTIN [Concomitant]
  6. HCTZ [Concomitant]
  7. LEVOTHYROXINE [Concomitant]
  8. LISINOPRIL [Concomitant]
  9. PANTOPRAZOLE [Concomitant]
  10. CEFTRIAZONE [Concomitant]
  11. DOXYCYCLINE [Concomitant]
  12. METHYLPREDNISOLONE [Concomitant]
  13. PREDNISONE [Concomitant]
  14. METOPROLOL [Concomitant]

REACTIONS (4)
  - Toxicity to various agents [None]
  - Acute respiratory failure [None]
  - Organising pneumonia [None]
  - Pneumonia [None]
